FAERS Safety Report 13506187 (Version 1)
Quarter: 2017Q2

REPORT INFORMATION
  Report Type: Spontaneous
  Country: US (occurrence: US)
  Receive Date: 20170502
  Receipt Date: 20170502
  Transmission Date: 20170830
  Serious: Yes (Life-Threatening, Hospitalization, Other)
  Sender: FDA-Public Use
  Company Number: US-ROCHE-1447590

PATIENT
  Age: 53 Year
  Sex: Female

DRUGS (6)
  1. FOLIC ACID. [Concomitant]
     Active Substance: FOLIC ACID
     Route: 065
  2. OXYCONTIN [Concomitant]
     Active Substance: OXYCODONE HYDROCHLORIDE
     Indication: PAIN
     Route: 065
  3. PRILOSEC [Concomitant]
     Active Substance: OMEPRAZOLE MAGNESIUM
     Route: 065
  4. ALIMTA [Concomitant]
     Active Substance: PEMETREXED DISODIUM
  5. AVASTIN [Suspect]
     Active Substance: BEVACIZUMAB
     Indication: LUNG NEOPLASM MALIGNANT
     Dosage: FIRST AND ONLY DOSE RECEIVED
     Route: 065
     Dates: start: 20140128, end: 20140128
  6. CARBOPLATINUM [Concomitant]
     Active Substance: CARBOPLATIN

REACTIONS (7)
  - Diverticulitis [Unknown]
  - Hypophagia [Recovered/Resolved]
  - Pain [Not Recovered/Not Resolved]
  - Septic shock [Unknown]
  - Gastrointestinal perforation [Unknown]
  - Hypersensitivity [Unknown]
  - Constipation [Not Recovered/Not Resolved]

NARRATIVE: CASE EVENT DATE: 20140202
